FAERS Safety Report 13348554 (Version 1)
Quarter: 2017Q1

REPORT INFORMATION
  Report Type: Spontaneous
  Country: US (occurrence: US)
  Receive Date: 20170320
  Receipt Date: 20170320
  Transmission Date: 20170428
  Serious: Yes (Hospitalization, Other)
  Sender: FDA-Public Use
  Company Number: US-ASTRAZENECA-2017SE27838

PATIENT
  Age: 91 Year
  Sex: Male
  Weight: 88.5 kg

DRUGS (1)
  1. SYMBICORT [Suspect]
     Active Substance: BUDESONIDE\FORMOTEROL FUMARATE DIHYDRATE
     Dosage: 80/4.5MCG, 2 INHALATIONS TWICE DAILY
     Route: 055
     Dates: start: 2015, end: 20170311

REACTIONS (7)
  - Hypertension [Unknown]
  - Aphonia [Recovered/Resolved with Sequelae]
  - Deafness [Not Recovered/Not Resolved]
  - Wheezing [Unknown]
  - Dysphonia [Unknown]
  - Weight increased [Unknown]
  - Intentional product misuse [Unknown]

NARRATIVE: CASE EVENT DATE: 2015
